FAERS Safety Report 24092662 (Version 2)
Quarter: 2024Q3

REPORT INFORMATION
  Report Type: Spontaneous
  Country: FR (occurrence: FR)
  Receive Date: 20240715
  Receipt Date: 20240719
  Transmission Date: 20241017
  Serious: Yes (Other)
  Sender: OTSUKA
  Company Number: None

PATIENT
  Age: 18 Year
  Sex: Female

DRUGS (2)
  1. ABILIFY [Suspect]
     Active Substance: ARIPIPRAZOLE
     Indication: Psychotic disorder
     Dosage: 1 DF, QD
     Route: 048
     Dates: start: 202401
  2. ETHINYL ESTRADIOL\LEVONORGESTREL [Suspect]
     Active Substance: ETHINYL ESTRADIOL\LEVONORGESTREL
     Indication: Oral contraception
     Dosage: 1 DF, QD (30/150 MICROGRAMS)
     Route: 048
     Dates: start: 20240502, end: 20240610

REACTIONS (2)
  - Hepatic cytolysis [Recovered/Resolved]
  - Product use in unapproved indication [Unknown]

NARRATIVE: CASE EVENT DATE: 20240101
